FAERS Safety Report 11160165 (Version 1)
Quarter: 2015Q2

REPORT INFORMATION
  Report Type: Spontaneous
  Country: US (occurrence: US)
  Receive Date: 20150603
  Receipt Date: 20150603
  Transmission Date: 20150821
  Serious: Yes (Other)
  Sender: FDA-Public Use
  Company Number: CHPA2015US006604

PATIENT
  Age: 73 Year
  Sex: Female

DRUGS (4)
  1. EXCEDRIN EXTRA STRENGTH [Suspect]
     Active Substance: ACETAMINOPHEN\ASPIRIN\CAFFEINE
     Indication: SINUS HEADACHE
     Route: 048
  2. EXCEDRIN MIGRAINE [Suspect]
     Active Substance: ACETAMINOPHEN\ASPIRIN\CAFFEINE
     Indication: SINUS HEADACHE
     Route: 065
  3. EXCEDRIN EXTRA STRENGTH [Suspect]
     Active Substance: ACETAMINOPHEN\ASPIRIN\CAFFEINE
     Indication: TENSION HEADACHE
  4. EXCEDRIN MIGRAINE [Suspect]
     Active Substance: ACETAMINOPHEN\ASPIRIN\CAFFEINE
     Indication: TENSION HEADACHE

REACTIONS (12)
  - Malaise [Unknown]
  - Liver disorder [Unknown]
  - Abdominal pain upper [Unknown]
  - Back pain [Unknown]
  - Product use issue [Unknown]
  - Cholelithiasis [Unknown]
  - Neck pain [Unknown]
  - Pain [Unknown]
  - Headache [Unknown]
  - Hepatic pain [Unknown]
  - Drug ineffective for unapproved indication [Unknown]
  - Decreased appetite [Unknown]

NARRATIVE: CASE EVENT DATE: 201503
